FAERS Safety Report 15735908 (Version 3)
Quarter: 2019Q1

REPORT INFORMATION
  Report Type: Spontaneous
  Country: US (occurrence: US)
  Receive Date: 20181218
  Receipt Date: 20190208
  Transmission Date: 20190417
  Serious: No
  Sender: FDA-Public Use
  Company Number: US-ASTRAZENECA-2018SF64086

PATIENT
  Age: 29682 Day
  Sex: Male

DRUGS (7)
  1. SEROVENT [Concomitant]
     Route: 065
  2. TRILOGY [Concomitant]
     Route: 065
  3. TUDORZA PRESSAIR [Suspect]
     Active Substance: ACLIDINIUM BROMIDE
     Indication: CHRONIC OBSTRUCTIVE PULMONARY DISEASE
     Route: 055
  4. BREO ELLIPTA [Concomitant]
     Active Substance: FLUTICASONE FUROATE\VILANTEROL TRIFENATATE
     Route: 055
  5. OXYGEN. [Concomitant]
     Active Substance: OXYGEN
     Route: 065
  6. TUDORZA PRESSAIR [Suspect]
     Active Substance: ACLIDINIUM BROMIDE
     Indication: CHRONIC OBSTRUCTIVE PULMONARY DISEASE
     Route: 055
  7. MEROPENEM. [Suspect]
     Active Substance: MEROPENEM
     Route: 042

REACTIONS (7)
  - Off label use [Unknown]
  - Dyspnoea [Unknown]
  - Incorrect disposal of product [Unknown]
  - Intentional product misuse [Unknown]
  - Malaise [Unknown]
  - Device malfunction [Unknown]
  - Pseudomonas infection [Unknown]

NARRATIVE: CASE EVENT DATE: 2015
